FAERS Safety Report 8849983 (Version 1)
Quarter: 2012Q4

REPORT INFORMATION
  Report Type: 
  Country: US (occurrence: US)
  Receive Date: 20121019
  Receipt Date: 20121019
  Transmission Date: 20130627
  Serious: Yes (Hospitalization)
  Sender: FDA-Public Use
  Company Number: US-SHIRE-ALL1-2012-04934

PATIENT
  Age: 12 Year
  Sex: Male

DRUGS (5)
  1. INTUNIV [Suspect]
     Indication: PRODUCT USED FOR UNKNOWN INDICATION
     Dosage: UNK, Unknown
     Route: 048
     Dates: start: 201105
  2. INTUNIV [Suspect]
     Dosage: 2 mg, 1x/day:qd
     Route: 048
  3. INTUNIV [Suspect]
     Dosage: 3 mg, 1x/day:qd
     Route: 048
  4. INTUNIV [Suspect]
     Dosage: 2 mg, 1x/day:qd
     Route: 048
     Dates: end: 201210
  5. NEURONTIN [Concomitant]
     Indication: HEADACHE
     Dosage: UNK, 1x/day:qd
     Route: 065

REACTIONS (6)
  - Hypertension [Unknown]
  - Viral infection [Unknown]
  - Lethargy [Unknown]
  - Sedation [Unknown]
  - Vomiting [Unknown]
  - Inappropriate schedule of drug administration [Not Recovered/Not Resolved]
